FAERS Safety Report 8231155-9 (Version None)
Quarter: 2012Q1

REPORT INFORMATION
  Report Type: 
  Country: None (occurrence: None)
  Receive Date: 20120320
  Receipt Date: 20120301
  Transmission Date: 20120608
  Serious: Yes (Other)
  Sender: FDA-Public Use
  Company Number: 2011P1008666

PATIENT
  Age: 55 Year
  Sex: Female
  Weight: 77.1115 kg

DRUGS (6)
  1. TERCONAZOLE [Suspect]
     Indication: VULVOVAGINAL MYCOTIC INFECTION
     Dosage: 1 APPLICATION;QHS;VAG
     Route: 067
     Dates: start: 20110801, end: 20110801
  2. MONOPRIL [Concomitant]
  3. XANAX [Concomitant]
  4. PREDNISONE TAB [Concomitant]
  5. BISMUTH SUBSALICYLATE [Suspect]
     Indication: ABDOMINAL PAIN UPPER
  6. PRILOSEC [Concomitant]

REACTIONS (3)
  - DRUG HYPERSENSITIVITY [None]
  - NECK PAIN [None]
  - CERVICOBRACHIAL SYNDROME [None]
